FAERS Safety Report 7335274-0 (Version None)
Quarter: 2011Q1

REPORT INFORMATION
  Report Type: 
  Country: None (occurrence: None)
  Receive Date: 20110307
  Receipt Date: 20110302
  Transmission Date: 20110831
  Serious: No
  Sender: FDA-Public Use
  Company Number: US-PFIZER INC-2011046552

PATIENT
  Sex: Female

DRUGS (2)
  1. INSULIN [Concomitant]
     Dosage: UNK
  2. LIPITOR [Suspect]
     Dosage: UNK
     Route: 048
     Dates: end: 20110201

REACTIONS (1)
  - PLATELET COUNT DECREASED [None]
